FAERS Safety Report 9291763 (Version 1)
Quarter: 2013Q2

REPORT INFORMATION
  Report Type: Spontaneous
  Country: US (occurrence: US)
  Receive Date: 20130516
  Receipt Date: 20130516
  Transmission Date: 20140414
  Serious: No
  Sender: FDA-Public Use
  Company Number: US-009507513-1305USA008029

PATIENT
  Age: 6 Year
  Sex: 0

DRUGS (1)
  1. SINGULAIR [Suspect]
     Dosage: 8MG DAILY
     Route: 048
     Dates: start: 201301

REACTIONS (1)
  - Overdose [Unknown]
